FAERS Safety Report 8532455-5 (Version None)
Quarter: 2012Q3

REPORT INFORMATION
  Report Type: 
  Country: None (occurrence: None)
  Receive Date: 20120716
  Receipt Date: 20120716
  Transmission Date: 20120928
  Serious: Yes (Disabling)
  Sender: FDA-Public Use
  Company Number: None

PATIENT
  Sex: Male

DRUGS (1)
  1. LESCOL XL [Suspect]
     Indication: BLOOD CHOLESTEROL INCREASED
     Dosage: ONE DAILY PO
     Route: 048
     Dates: start: 20120103, end: 20120209

REACTIONS (4)
  - MUSCLE SPASMS [None]
  - DEPRESSION [None]
  - UNEVALUABLE EVENT [None]
  - INSOMNIA [None]
